FAERS Safety Report 6313851-3 (Version None)
Quarter: 2009Q3

REPORT INFORMATION
  Report Type: 
  Country: None (occurrence: None)
  Receive Date: 20090814
  Receipt Date: 20090811
  Transmission Date: 20100115
  Serious: Yes (Hospitalization, Other)
  Sender: FDA-Public Use
  Company Number: 09GB003073

PATIENT
  Age: 51 Year
  Sex: Female
  Weight: 103 kg

DRUGS (13)
  1. IBUPROFEN [Suspect]
     Indication: PAIN
     Dosage: 400 MG, TID, ORAL; DECREASED DOSE, ORAL
     Route: 048
     Dates: start: 20060301, end: 20090709
  2. IBUPROFEN [Suspect]
     Indication: PAIN
     Dosage: 400 MG, TID, ORAL; DECREASED DOSE, ORAL
     Route: 048
     Dates: start: 20090708
  3. AMITRIPTYLINE HYDROCHLORIDE [Suspect]
     Indication: DEPRESSION
     Dosage: 150 MG, QD, ORAL
     Route: 048
     Dates: start: 20051110
  4. FRUSEMIDE(FRUSEMIDE) [Suspect]
     Indication: JOINT SWELLING
     Dosage: 20 MG, QD, ORAL
     Route: 048
     Dates: start: 20060901, end: 20090709
  5. RISPERIDONE [Suspect]
     Indication: SCHIZOAFFECTIVE DISORDER
     Dosage: 3 MG, BID, ORAL
     Route: 048
     Dates: start: 20070730
  6. DIHYDROCODEINE COMPOUND [Concomitant]
  7. FYBOGEL (PLANTAGO OVATA) [Concomitant]
  8. LACTULOSE [Concomitant]
  9. LANSOPRAZOLE [Concomitant]
  10. MAXEPA (DOCOSAHEXANOIC ACID, EICOSAPENTAENOIC ACID) [Concomitant]
  11. MOVICOL (MACROGOL 3350, POTASSIUM CHLORIDE, SODIUM BICARBONATE, SODIUM [Concomitant]
  12. PARACETAMOL (PARACETAMOL) [Concomitant]
  13. VALPROATE SODIUM [Concomitant]

REACTIONS (3)
  - BLOOD OSMOLARITY DECREASED [None]
  - BURNING SENSATION [None]
  - HYPONATRAEMIA [None]
